FAERS Safety Report 5086588-9 (Version None)
Quarter: 2006Q3

REPORT INFORMATION
  Report Type: 
  Country: None (occurrence: None)
  Receive Date: 20060823
  Receipt Date: 20060816
  Transmission Date: 20061208
  Serious: Yes (Hospitalization)
  Sender: FDA-Public Use
  Company Number: JP-JPN-A200603177

PATIENT
  Sex: Female

DRUGS (2)
  1. PAXIL [Suspect]
     Route: 048
  2. ANTIHYPERTENSIVE (UNSPECIFIED) [Concomitant]
     Route: 065

REACTIONS (1)
  - RHABDOMYOLYSIS [None]
